FAERS Safety Report 22023280 (Version 1)
Quarter: 2023Q1

REPORT INFORMATION
  Report Type: Spontaneous
  Country: US (occurrence: None)
  Receive Date: 20230223
  Receipt Date: 20230223
  Transmission Date: 20230418
  Serious: Yes (Other)
  Sender: FDA-Public Use
  Company Number: US-ROCHE-3286265

PATIENT
  Age: 80 Year
  Sex: Female
  Weight: 81.720 kg

DRUGS (9)
  1. ACTEMRA [Suspect]
     Active Substance: TOCILIZUMAB
     Indication: Giant cell arteritis
     Route: 058
     Dates: start: 202108
  2. ACTEMRA [Suspect]
     Active Substance: TOCILIZUMAB
  3. ACTEMRA [Suspect]
     Active Substance: TOCILIZUMAB
     Indication: Polymyalgia rheumatica
     Route: 058
  4. ACTEMRA [Suspect]
     Active Substance: TOCILIZUMAB
  5. PREDNISONE [Concomitant]
     Active Substance: PREDNISONE
  6. ELIQUIS [Concomitant]
     Active Substance: APIXABAN
  7. FUROSEMIDE [Concomitant]
     Active Substance: FUROSEMIDE
  8. LISINOPRIL [Concomitant]
     Active Substance: LISINOPRIL
  9. MONTELUKAST [Concomitant]
     Active Substance: MONTELUKAST SODIUM

REACTIONS (10)
  - Blood bilirubin increased [Not Recovered/Not Resolved]
  - Vascular pain [Unknown]
  - Pain [Unknown]
  - Muscle tightness [Unknown]
  - Weight increased [Not Recovered/Not Resolved]
  - Alopecia [Unknown]
  - Atrial fibrillation [Unknown]
  - Sleep disorder [Unknown]
  - Arthralgia [Unknown]
  - Vasodilatation [Unknown]

NARRATIVE: CASE EVENT DATE: 20220101
